FAERS Safety Report 6192448-2 (Version None)
Quarter: 2009Q2

REPORT INFORMATION
  Report Type: 
  Country: None (occurrence: None)
  Receive Date: 20090518
  Receipt Date: 20071009
  Transmission Date: 20091009
  Serious: Yes (Other)
  Sender: FDA-Public Use
  Company Number: US-ASTRAZENECA-2006UW24732

PATIENT
  Age: 14777 Day
  Sex: Male
  Weight: 113.4 kg

DRUGS (9)
  1. SEROQUEL [Suspect]
     Route: 048
     Dates: start: 20000411
  2. RISPERDAL [Concomitant]
     Route: 065
     Dates: start: 20020724
  3. PAXIL [Concomitant]
     Route: 065
  4. COGENTIN [Concomitant]
     Dosage: 1MG-2MG
     Route: 065
  5. TRAZODONE HCL [Concomitant]
     Route: 065
  6. ZYPREXA [Concomitant]
     Dosage: 10MG-20MG
     Route: 065
  7. BENADRYL [Concomitant]
     Dosage: 50MG-100MG
     Route: 065
  8. HALDOL [Concomitant]
     Route: 065
  9. PROZAC [Concomitant]
     Route: 065

REACTIONS (10)
  - ANAEMIA [None]
  - CHRONIC OBSTRUCTIVE PULMONARY DISEASE [None]
  - DRY SKIN [None]
  - ECZEMA [None]
  - HYPERTENSION [None]
  - INSOMNIA [None]
  - RASH [None]
  - SUBCUTANEOUS ABSCESS [None]
  - TINEA PEDIS [None]
  - XEROSIS [None]
